FAERS Safety Report 9685580 (Version 2)
Quarter: 2013Q4

REPORT INFORMATION
  Report Type: Report from Study
  Country: DE (occurrence: DE)
  Receive Date: 20131113
  Receipt Date: 20131113
  Transmission Date: 20140711
  Serious: Yes (Hospitalization)
  Sender: FDA-Public Use
  Company Number: DE-VERTEX PHARMACEUTICALS INC-000000000000001035

PATIENT
  Age: 72 Year
  Sex: Female
  Weight: 58 kg

DRUGS (3)
  1. VX-950 (TELAPREVIR) [Suspect]
     Indication: HEPATITIS C
     Dosage: DOSAGE FORM: TABLET
     Route: 048
     Dates: start: 20111009, end: 20120402
  2. COPEGUS [Suspect]
     Indication: HEPATITIS C
     Dosage: 800 MG, QD
     Dates: start: 20120109
  3. PEGASYS [Concomitant]
     Indication: HEPATITIS C
     Dosage: 180 ?G, QW
     Route: 058
     Dates: start: 20120109

REACTIONS (1)
  - Syncope [Recovered/Resolved]
